FAERS Safety Report 14544428 (Version 3)
Quarter: 2018Q3

REPORT INFORMATION
  Report Type: Report from Study
  Country: DE (occurrence: DE)
  Receive Date: 20180217
  Receipt Date: 20180920
  Transmission Date: 20181010
  Serious: Yes (Death, Hospitalization, Other)
  Sender: FDA-Public Use
  Company Number: DE-BRISTOL-MYERS SQUIBB COMPANY-BMS-2017-121044

PATIENT
  Age: 45 Year
  Sex: Male
  Weight: 63.3 kg

DRUGS (13)
  1. NIVOLUMAB [Suspect]
     Active Substance: NIVOLUMAB
     Indication: MALIGNANT MELANOMA
     Dosage: 1 DF, Q3WK
     Route: 065
     Dates: start: 20170810, end: 20170810
  2. IPILIMUMAB [Suspect]
     Active Substance: IPILIMUMAB
     Indication: PRODUCT USED FOR UNKNOWN INDICATION
     Dosage: 1 DF, Q3WK
     Route: 065
     Dates: start: 20170929, end: 20171213
  3. IBUPROFEN. [Concomitant]
     Active Substance: IBUPROFEN
     Indication: PRODUCT USED FOR UNKNOWN INDICATION
     Route: 065
  4. CEFACLOR. [Concomitant]
     Active Substance: CEFACLOR
     Indication: PRODUCT USED FOR UNKNOWN INDICATION
     Dosage: 1500 MG, DAILY
     Route: 048
     Dates: end: 20180207
  5. KEPPRA [Concomitant]
     Active Substance: LEVETIRACETAM
     Indication: METASTASES TO CENTRAL NERVOUS SYSTEM
     Dosage: 1000 MG, QD
     Route: 048
     Dates: start: 20170916
  6. THIAMAZOL [Concomitant]
     Active Substance: METHIMAZOLE
     Indication: FACIAL PARALYSIS
     Dosage: 20 MG, QD
     Route: 048
     Dates: start: 20170916
  7. FORTECORTIN                        /00016001/ [Concomitant]
     Active Substance: DEXAMETHASONE
     Indication: FACIAL PARALYSIS
     Dosage: 1 DF, QD
     Route: 048
     Dates: start: 20170916
  8. IPILIMUMAB [Suspect]
     Active Substance: IPILIMUMAB
     Indication: MALIGNANT MELANOMA
     Dosage: 1 DF, Q3WK
     Route: 065
     Dates: start: 20170810, end: 20170810
  9. NIVOLUMAB [Suspect]
     Active Substance: NIVOLUMAB
     Indication: PRODUCT USED FOR UNKNOWN INDICATION
     Dosage: 1 DF, Q3WK
     Route: 065
     Dates: start: 20170907, end: 20170907
  10. NIVOLUMAB [Suspect]
     Active Substance: NIVOLUMAB
     Indication: PRODUCT USED FOR UNKNOWN INDICATION
     Dosage: 1 DF, Q3WK
     Route: 065
     Dates: start: 20170929, end: 20171213
  11. IPILIMUMAB [Suspect]
     Active Substance: IPILIMUMAB
     Indication: PRODUCT USED FOR UNKNOWN INDICATION
     Dosage: 1 DF, Q3WK
     Route: 065
     Dates: start: 20170907, end: 20170907
  12. STEROFUNDIN [Concomitant]
     Active Substance: CALCIUM CHLORIDE\MAGNESIUM CHLORIDE\POTASSIUM CHLORIDE\SODIUM ACETATE\SODIUM CHLORIDE
     Indication: PRODUCT USED FOR UNKNOWN INDICATION
     Dosage: 1000 ML, PRN
     Route: 042
     Dates: start: 20170831, end: 20170831
  13. BISOPROLOL [Concomitant]
     Active Substance: BISOPROLOL
     Indication: FACIAL PARALYSIS
     Dosage: 5 MG, QD
     Route: 042
     Dates: start: 20170916

REACTIONS (4)
  - Autoimmune thyroiditis [Unknown]
  - Cholecystitis [Unknown]
  - Malignant neoplasm progression [Fatal]
  - Autoimmune hepatitis [Recovering/Resolving]

NARRATIVE: CASE EVENT DATE: 20170824
